FAERS Safety Report 18047930 (Version 1)
Quarter: 2020Q3

REPORT INFORMATION
  Report Type: Spontaneous
  Country: US (occurrence: US)
  Receive Date: 20200718
  Receipt Date: 20200718
  Transmission Date: 20201103
  Serious: No
  Sender: FDA-Public Use
  Company Number: None

PATIENT

DRUGS (2)
  1. PLATEAU TRAVEL PLAZA LABEL NEW BASIN DISTILLING HAND SANITIZER [Suspect]
     Active Substance: ALCOHOL
     Indication: PROPHYLAXIS
  2. PLATEAU TRAVEL PLAZA LABEL NEW BASIN DISTILLING HAND SANITIZER [Suspect]
     Active Substance: ALCOHOL
     Indication: INFECTION PROPHYLAXIS

REACTIONS (1)
  - Product packaging confusion [None]

NARRATIVE: CASE EVENT DATE: 20200703
